FAERS Safety Report 4288716-1 (Version None)
Quarter: 2004Q1

REPORT INFORMATION
  Report Type: 
  Country: None (occurrence: None)
  Receive Date: 20040209
  Receipt Date: 20030604
  Transmission Date: 20041129
  Serious: Yes (Hospitalization)
  Sender: FDA-Public Use
  Company Number: WAES 0306USA00714

PATIENT
  Age: 42 Month
  Sex: Female

DRUGS (3)
  1. PROVENTIL [Concomitant]
  2. SINGULAIR [Suspect]
     Indication: ASTHMA
     Route: 048
     Dates: start: 20011201, end: 20020201
  3. SINGULAIR [Suspect]
     Route: 048
     Dates: start: 20030227, end: 20030501

REACTIONS (7)
  - ABDOMINAL DISTENSION [None]
  - CYTOMEGALOVIRUS TEST POSITIVE [None]
  - DEHYDRATION [None]
  - HERPES SIMPLEX SEROLOGY POSITIVE [None]
  - PANCREATITIS [None]
  - PANCREATITIS ACUTE [None]
  - RUBELLA ANTIBODY POSITIVE [None]
